FAERS Safety Report 11334888 (Version 1)
Quarter: 2015Q3

REPORT INFORMATION
  Report Type: Report from Study
  Country: AU (occurrence: AU)
  Receive Date: 20150804
  Receipt Date: 20150804
  Transmission Date: 20151125
  Serious: Yes (Hospitalization, Other)
  Sender: FDA-Public Use
  Company Number: PHHY2015AU072585

PATIENT
  Age: 50 Year
  Sex: Male
  Weight: 95.6 kg

DRUGS (20)
  1. CLOZARIL [Suspect]
     Active Substance: CLOZAPINE
     Indication: SCHIZOPHRENIA
     Dosage: 400 MG, QD
     Route: 048
     Dates: start: 20011217, end: 20150615
  2. VALPROATE SODIUM. [Suspect]
     Active Substance: VALPROATE SODIUM
     Dosage: 1300 MG, BID
     Route: 048
     Dates: end: 20150616
  3. VALPROATE SODIUM. [Suspect]
     Active Substance: VALPROATE SODIUM
     Indication: AFFECTIVE DISORDER
     Dosage: 122 MG, BID
     Route: 048
  4. AMISULPRIDE [Concomitant]
     Active Substance: AMISULPRIDE
     Indication: PSYCHOTIC DISORDER
     Dosage: 200 MG, BID
     Route: 048
     Dates: end: 20150603
  5. COLOXYL WITH SENNA [Concomitant]
     Active Substance: DOCUSATE\SENNOSIDES
     Indication: PRODUCT USED FOR UNKNOWN INDICATION
     Dosage: 2 DF, QD
     Route: 048
     Dates: start: 20150615, end: 20150619
  6. HEPARIN [Concomitant]
     Active Substance: HEPARIN SODIUM
     Indication: THROMBOSIS PROPHYLAXIS
     Dosage: 5000 OT, QD
     Route: 058
     Dates: start: 20150617, end: 20150619
  7. NORMAL SALINE [Concomitant]
     Active Substance: SODIUM CHLORIDE
     Dosage: 1 L, (83/ML HR, 100 ML.HR).
     Route: 065
     Dates: start: 20150617
  8. KCL [Concomitant]
     Active Substance: POTASSIUM CHLORIDE
     Indication: PRODUCT USED FOR UNKNOWN INDICATION
     Dosage: 20 MMOL, UNK
     Route: 065
     Dates: start: 20150615
  9. TEMAZEPAM. [Concomitant]
     Active Substance: TEMAZEPAM
     Indication: SLEEP DISORDER
     Dosage: 10 MG, QD
     Route: 048
     Dates: start: 20150617
  10. VALPROATE SODIUM. [Suspect]
     Active Substance: VALPROATE SODIUM
     Dosage: 1000 MG, BID
     Route: 048
     Dates: start: 20150616
  11. NORMAL SALINE [Concomitant]
     Active Substance: SODIUM CHLORIDE
     Indication: PRODUCT USED FOR UNKNOWN INDICATION
     Dosage: 1 L (1000 ML/HR, 100 ML/JR)
     Route: 065
     Dates: start: 20150615
  12. SERETIDE MDI [Concomitant]
     Active Substance: FLUTICASONE PROPIONATE\SALMETEROL XINAFOATE
     Indication: PRODUCT USED FOR UNKNOWN INDICATION
     Dosage: 1 DF, BID
     Route: 055
  13. FERROUS SULFATE [Concomitant]
     Active Substance: FERROUS SULFATE\FERROUS SULFATE, DRIED
     Indication: MINERAL SUPPLEMENTATION
     Dosage: 1 DF, MORNING
     Route: 048
     Dates: start: 20150616, end: 20150619
  14. ASPIRIN. [Concomitant]
     Active Substance: ASPIRIN
     Indication: PROPHYLAXIS
     Dosage: 100 MG, QD
     Route: 048
     Dates: start: 20150617
  15. PRAVASTATIN [Concomitant]
     Active Substance: PRAVASTATIN\PRAVASTATIN SODIUM
     Indication: PRODUCT USED FOR UNKNOWN INDICATION
     Dosage: 20 MG, QD
     Route: 048
     Dates: start: 20150617, end: 20150619
  16. KCL [Concomitant]
     Active Substance: POTASSIUM CHLORIDE
     Dosage: 20 MMOL, UNK
     Route: 065
     Dates: start: 20150618
  17. VENLAFAXINE [Suspect]
     Active Substance: VENLAFAXINE HYDROCHLORIDE
     Indication: PRODUCT USED FOR UNKNOWN INDICATION
     Dosage: 300 MG
     Route: 048
  18. AMISULPRIDE [Concomitant]
     Active Substance: AMISULPRIDE
     Dosage: 200 MG, BID
     Route: 048
     Dates: start: 20150617
  19. SALBUTAMOL [Concomitant]
     Active Substance: ALBUTEROL
     Indication: PRODUCT USED FOR UNKNOWN INDICATION
     Dosage: 1 DF, QID
     Route: 055
  20. NORMAL SALINE [Concomitant]
     Active Substance: SODIUM CHLORIDE
     Dosage: 1 L, (100 ML/HR)
     Route: 065
     Dates: start: 20150618

REACTIONS (47)
  - Intestinal obstruction [Recovering/Resolving]
  - Chronic obstructive pulmonary disease [Unknown]
  - Hyponatraemia [Not Recovered/Not Resolved]
  - Blood albumin decreased [Recovered/Resolved]
  - Haematocrit decreased [Recovered/Resolved]
  - Antipsychotic drug level increased [Recovered/Resolved]
  - Neutrophil count decreased [Recovered/Resolved]
  - Inappropriate antidiuretic hormone secretion [Unknown]
  - Hypophagia [Unknown]
  - Constipation [Unknown]
  - Neutrophil count decreased [Recovered/Resolved]
  - Pneumonia [Recovering/Resolving]
  - Acute kidney injury [Unknown]
  - Abdominal pain [Unknown]
  - Antiphospholipid antibodies positive [Unknown]
  - Blood lactate dehydrogenase decreased [Recovered/Resolved]
  - Tachycardia [Unknown]
  - Intestinal dilatation [Unknown]
  - Cough [Unknown]
  - White blood cell count decreased [Recovered/Resolved]
  - Pyrexia [Unknown]
  - Oropharyngeal pain [Unknown]
  - Red blood cell sedimentation rate increased [Recovered/Resolved]
  - Lymphocyte count decreased [Unknown]
  - Blood alkaline phosphatase increased [Recovered/Resolved]
  - Nausea [Unknown]
  - Pancytopenia [Unknown]
  - Hepatitis C [Unknown]
  - Blood albumin decreased [Recovered/Resolved]
  - Anticonvulsant drug level increased [Not Recovered/Not Resolved]
  - Pleural fibrosis [Unknown]
  - Sepsis [Recovering/Resolving]
  - Faecaloma [Unknown]
  - Vomiting [Unknown]
  - Blood glucose increased [Recovered/Resolved]
  - White blood cell count decreased [Recovered/Resolved]
  - Hypotension [Unknown]
  - Protein total increased [Unknown]
  - Anticonvulsant drug level decreased [Unknown]
  - Activated partial thromboplastin time prolonged [Unknown]
  - C-reactive protein increased [Recovered/Resolved]
  - Diverticulum [Unknown]
  - Antipsychotic drug level decreased [Recovered/Resolved]
  - Platelet count decreased [Unknown]
  - Haemoglobin decreased [Recovered/Resolved]
  - Gamma-glutamyltransferase increased [Not Recovered/Not Resolved]
  - Diarrhoea [Unknown]

NARRATIVE: CASE EVENT DATE: 20080803
